FAERS Safety Report 16746763 (Version 1)
Quarter: 2019Q3

REPORT INFORMATION
  Report Type: Spontaneous
  Country: CA (occurrence: CA)
  Receive Date: 20190827
  Receipt Date: 20190827
  Transmission Date: 20191005
  Serious: Yes (Other)
  Sender: FDA-Public Use
  Company Number: CA-ROCHE-2391949

PATIENT
  Sex: Female

DRUGS (9)
  1. CELEBREX [Suspect]
     Active Substance: CELECOXIB
     Indication: PRODUCT USED FOR UNKNOWN INDICATION
     Dosage: DISCONTINUED
     Route: 065
  2. SULFASALAZINE. [Suspect]
     Active Substance: SULFASALAZINE
     Indication: PRODUCT USED FOR UNKNOWN INDICATION
     Dosage: DISCONTINUED
     Route: 065
  3. IRON [Concomitant]
     Active Substance: IRON
     Dosage: ONGOING
     Route: 065
  4. VALIUM [Suspect]
     Active Substance: DIAZEPAM
     Indication: PRODUCT USED FOR UNKNOWN INDICATION
     Route: 065
  5. ARAVA [Concomitant]
     Active Substance: LEFLUNOMIDE
     Dosage: ONGOING
     Route: 065
  6. TETRACYCLINE [Concomitant]
     Active Substance: TETRACYCLINE
  7. MELOXICAM. [Concomitant]
     Active Substance: MELOXICAM
     Dosage: 7.5MG OD AND CAN TAKE BID IF NEEDED, ONGOING
     Route: 048
  8. ARAVA [Concomitant]
     Active Substance: LEFLUNOMIDE
     Route: 065
  9. ERYTHROMYCIN. [Concomitant]
     Active Substance: ERYTHROMYCIN

REACTIONS (3)
  - Anaphylactic reaction [Unknown]
  - Peripheral swelling [Recovered/Resolved]
  - Arthropathy [Unknown]
